FAERS Safety Report 18506751 (Version 1)
Quarter: 2020Q4

REPORT INFORMATION
  Report Type: Spontaneous
  Country: CO (occurrence: CO)
  Receive Date: 20201116
  Receipt Date: 20201116
  Transmission Date: 20210114
  Serious: Yes (Death, Hospitalization, Other)
  Sender: FDA-Public Use
  Company Number: CO-GLAXOSMITHKLINE-CO2020GSK221636

PATIENT
  Age: 40 Year
  Sex: Female

DRUGS (1)
  1. BUPROPION. [Suspect]
     Active Substance: BUPROPION
     Indication: BIPOLAR DISORDER
     Dosage: 300 MG
     Route: 048

REACTIONS (10)
  - Generalised tonic-clonic seizure [Unknown]
  - Dyskinesia [Unknown]
  - Pyrexia [Unknown]
  - Muscle rigidity [Unknown]
  - Unresponsive to stimuli [Unknown]
  - Autonomic nervous system imbalance [Unknown]
  - Neuroleptic malignant syndrome [Unknown]
  - Cardiac arrest [Fatal]
  - Toxicity to various agents [Unknown]
  - Overdose [Unknown]
